FAERS Safety Report 5019260-1 (Version None)
Quarter: 2006Q2

REPORT INFORMATION
  Report Type: 
  Country: None (occurrence: None)
  Receive Date: 20060531
  Receipt Date: 20060524
  Transmission Date: 20061013
  Serious: Yes (Hospitalization, Other)
  Sender: FDA-Public Use
  Company Number: 2006067570

PATIENT
  Age: 51 Year
  Sex: Male
  Weight: 70 kg

DRUGS (5)
  1. SOMAVERT [Suspect]
     Indication: ACROMEGALY
     Dosage: 10 MG (10 MG, 1 IN 1 D), SUBCUTANEOUS
     Route: 058
     Dates: start: 20060201, end: 20060519
  2. LEVOTHYROXINE SODIUM [Concomitant]
  3. HYDROCORTISONE [Concomitant]
  4. ENALAPRIL MALEATE [Concomitant]
  5. TESTOSTERONE [Concomitant]

REACTIONS (2)
  - LEUKAEMIA [None]
  - PANCYTOPENIA [None]
